FAERS Safety Report 6710188-5 (Version None)
Quarter: 2010Q2

REPORT INFORMATION
  Report Type: 
  Country: None (occurrence: None)
  Receive Date: 20100504
  Receipt Date: 20100423
  Transmission Date: 20101027
  Serious: Yes (Death, Hospitalization)
  Sender: FDA-Public Use
  Company Number: DE-WYE-H09536109

PATIENT
  Age: 78 Year
  Sex: Male

DRUGS (13)
  1. PANTOPRAZOLE [Suspect]
     Indication: PROPHYLAXIS AGAINST GASTROINTESTINAL ULCER
     Route: 048
     Dates: start: 20080712, end: 20080726
  2. CEFTRIAXONE [Suspect]
     Indication: PNEUMONIA
     Route: 042
     Dates: start: 20080718, end: 20080722
  3. CIPRO [Suspect]
     Indication: EPIDIDYMITIS
     Route: 048
     Dates: start: 20080612, end: 20080710
  4. ACETYLSALICYLIC ACID [Concomitant]
     Indication: ISCHAEMIC HEART DISEASE PROPHYLAXIS
     Dosage: 100 MG, UNSPECIFIED FREQUENCY
     Dates: start: 20080726
  5. DIGITOXIN [Concomitant]
     Dosage: 0.07 MG, UNSPECIFIED FREQUENCY
  6. TORASEMIDE [Concomitant]
     Indication: HYPERTENSION
     Dosage: 10 MG, UNSPECIFIED FREQUENCY
     Route: 048
  7. FURORESE [Concomitant]
     Indication: OEDEMA
     Dosage: 20 MG, UNSPECIFIED FREQUENCY
     Route: 048
     Dates: end: 20080726
  8. GLEEVEC [Concomitant]
     Indication: CHRONIC MYELOID LEUKAEMIA
     Dosage: 400 MG, UNSPECIFIED FREQUENCY
     Route: 048
     Dates: start: 20040101, end: 20080730
  9. METAMIZOLE SODIUM [Concomitant]
     Indication: PLEURISY
     Dosage: 750 MG, UNSPECIFIED FREQUENCY
     Route: 048
     Dates: start: 20080711, end: 20080726
  10. NOVONORM [Concomitant]
     Indication: TYPE 2 DIABETES MELLITUS
     Dosage: 1 MG, UNSPECIFIED FREQUENCY
     Route: 048
  11. SYMBICORT [Concomitant]
     Indication: CHRONIC OBSTRUCTIVE PULMONARY DISEASE
     Dosage: 1 DOSE FORM, UNSPECIFIED FREQUENCY
     Route: 055
  12. AVELOX [Suspect]
     Indication: PNEUMONIA
     Route: 048
     Dates: start: 20080701, end: 20080710
  13. ENALAPRIL MALEATE [Concomitant]
     Indication: HYPERTENSION
     Dosage: 20 MG, UNSPECIFIED FREQUENCY
     Route: 048
     Dates: start: 20080805

REACTIONS (5)
  - CYSTITIS [None]
  - PROTEIN-LOSING GASTROENTEROPATHY [None]
  - PSEUDOMEMBRANOUS COLITIS [None]
  - RENAL FAILURE ACUTE [None]
  - WEIGHT DECREASED [None]
